FAERS Safety Report 10152454 (Version 2)
Quarter: 2014Q2

REPORT INFORMATION
  Report Type: Spontaneous
  Country: US (occurrence: US)
  Receive Date: 20140505
  Receipt Date: 20140505
  Transmission Date: 20141212
  Serious: No
  Sender: FDA-Public Use
  Company Number: US-TEVA-394093USA

PATIENT
  Sex: Female

DRUGS (1)
  1. CLARAVIS [Suspect]

REACTIONS (3)
  - Acne [Unknown]
  - Erythema [Unknown]
  - Dry skin [Unknown]
